FAERS Safety Report 13201006 (Version 1)
Quarter: 2017Q1

REPORT INFORMATION
  Report Type: Spontaneous
  Country: IN (occurrence: IN)
  Receive Date: 20170209
  Receipt Date: 20170209
  Transmission Date: 20170428
  Serious: Yes (Hospitalization, Other)
  Sender: FDA-Public Use
  Company Number: IN-ZYDUS-013739

PATIENT
  Age: 24 Year
  Sex: Male

DRUGS (2)
  1. TOPIRAMATE. [Suspect]
     Active Substance: TOPIRAMATE
     Indication: PROPHYLAXIS
     Route: 065
  2. LEVETIRACETAM. [Concomitant]
     Active Substance: LEVETIRACETAM
     Indication: PROPHYLAXIS
     Route: 065

REACTIONS (10)
  - Respiratory fatigue [Recovered/Resolved]
  - Hyperventilation [Recovered/Resolved]
  - Urine abnormality [Recovered/Resolved]
  - Anion gap increased [Recovered/Resolved]
  - Depressed level of consciousness [Recovered/Resolved]
  - Neutrophil count increased [Recovered/Resolved]
  - Acid-base balance disorder mixed [Recovered/Resolved]
  - Respiratory rate increased [Recovered/Resolved]
  - Pyrexia [Recovered/Resolved]
  - Renal tubular acidosis [Recovered/Resolved]
